FAERS Safety Report 9558375 (Version 1)
Quarter: 2013Q3

REPORT INFORMATION
  Report Type: Spontaneous
  Country: GB (occurrence: GB)
  Receive Date: 20130926
  Receipt Date: 20130926
  Transmission Date: 20140515
  Serious: Yes (Other)
  Sender: FDA-Public Use
  Company Number: GB-ACTAVIS-2013-16895

PATIENT
  Age: 24 Year
  Sex: Male
  Weight: 58 kg

DRUGS (1)
  1. TRAMADOL (UNKNOWN) [Suspect]
     Indication: PROCEDURAL PAIN
     Dosage: 200 MG, UNKNOWN
     Route: 048
     Dates: start: 201210, end: 201210

REACTIONS (3)
  - Hallucination [Recovered/Resolved]
  - Nightmare [Recovered/Resolved]
  - Intentional self-injury [Recovered/Resolved]
